FAERS Safety Report 4511793-7 (Version None)
Quarter: 2004Q4

REPORT INFORMATION
  Report Type: 
  Country: None (occurrence: None)
  Receive Date: 20041123
  Receipt Date: 20041123
  Transmission Date: 20050328
  Serious: Yes (Other)
  Sender: FDA-Public Use
  Company Number: None

PATIENT
  Age: 72 Year
  Sex: Male
  Weight: 80.7 kg

DRUGS (6)
  1. SIMVASTATIN [Suspect]
  2. GATIFLOXACIN [Concomitant]
  3. MELOXICAM [Concomitant]
  4. TERAZOSIN HCL [Concomitant]
  5. HYDROCODONE 5/ ACETAMINOPHEN 500MG [Concomitant]
  6. SILDENAFIL CITRATE [Concomitant]

REACTIONS (1)
  - MYALGIA [None]
